FAERS Safety Report 14538428 (Version 1)
Quarter: 2018Q1

REPORT INFORMATION
  Report Type: Spontaneous
  Country: DK (occurrence: DK)
  Receive Date: 20180216
  Receipt Date: 20180216
  Transmission Date: 20180509
  Serious: Yes (Death, Hospitalization)
  Sender: FDA-Public Use
  Company Number: DK-BAXTER-2018BAX005031

PATIENT
  Age: 19 Year
  Sex: Female
  Weight: 71 kg

DRUGS (3)
  1. SENDOXAN [Suspect]
     Active Substance: CYCLOPHOSPHAMIDE
     Indication: CHEMOTHERAPY
     Dosage: TREATMENT WITH HIGH DOSE CYCLOPHOSPHAMIDE AS A STEP IN A BONE MARROW TRANSPLANT
     Route: 065
     Dates: start: 20161130
  2. THYMOGLOBULINE [Concomitant]
     Active Substance: LAPINE T-LYMPHOCYTE IMMUNE GLOBULIN
     Indication: PRODUCT USED FOR UNKNOWN INDICATION
     Route: 065
     Dates: start: 20161130
  3. CEFTAZIDIME. [Concomitant]
     Active Substance: CEFTAZIDIME
     Indication: ANTIBIOTIC PROPHYLAXIS
     Route: 065

REACTIONS (19)
  - Oedema peripheral [Unknown]
  - Cardiomyopathy [Fatal]
  - Fluid overload [Unknown]
  - Weight increased [Unknown]
  - Oxygen saturation decreased [Unknown]
  - Cardiomegaly [Unknown]
  - Sleep disorder [Unknown]
  - Nausea [Unknown]
  - Pulmonary congestion [Unknown]
  - Dysuria [Unknown]
  - Face oedema [Unknown]
  - Cardiac failure [Fatal]
  - Pyrexia [Unknown]
  - Oropharyngeal pain [Unknown]
  - Decreased appetite [Unknown]
  - Hypotension [Unknown]
  - Vision blurred [Unknown]
  - Pulse abnormal [Unknown]
  - C-reactive protein increased [Unknown]

NARRATIVE: CASE EVENT DATE: 20161201
